FAERS Safety Report 21255423 (Version 3)
Quarter: 2022Q3

REPORT INFORMATION
  Report Type: Spontaneous
  Country: US (occurrence: US)
  Receive Date: 20220825
  Receipt Date: 20220924
  Transmission Date: 20221026
  Serious: No
  Sender: FDA-Public Use
  Company Number: US-JNJFOC-20220827081

PATIENT
  Sex: Female

DRUGS (2)
  1. TREMFYA [Suspect]
     Active Substance: GUSELKUMAB
     Indication: Psoriasis
     Route: 065
  2. TREMFYA [Suspect]
     Active Substance: GUSELKUMAB

REACTIONS (2)
  - Drug ineffective [Unknown]
  - Rash pruritic [Unknown]
